FAERS Safety Report 14608252 (Version 4)
Quarter: 2018Q2

REPORT INFORMATION
  Report Type: Other
  Country: ES (occurrence: ES)
  Receive Date: 20180307
  Receipt Date: 20180416
  Transmission Date: 20180711
  Serious: Yes (Death)
  Sender: FDA-Public Use
  Company Number: ES-GBPHLPEH-2018-PEL-003347

PATIENT

DRUGS (6)
  1. SINTROM [Concomitant]
     Active Substance: ACENOCOUMAROL
     Indication: CARDIAC VALVE DISEASE
     Dosage: UNK
     Route: 065
  2. SEVOFLURANO PIRAMAL {100%} LIQUIDO PARA INHALACION DEL VAPOR [Suspect]
     Active Substance: SEVOFLURANE
     Indication: CATARACT OPERATION
     Dosage: UNK
     Route: 055
     Dates: start: 20180125, end: 20180125
  3. EUTIROX [Concomitant]
     Active Substance: LEVOTHYROXINE SODIUM
     Dosage: UNK
     Route: 065
  4. ACFOL [Concomitant]
     Active Substance: FOLIC ACID
     Dosage: UNK
     Route: 065
  5. FERBISOL [Concomitant]
     Dosage: UNK
     Route: 065
  6. PANTOPRAZOLE [Concomitant]
     Active Substance: PANTOPRAZOLE
     Dosage: UNK
     Route: 065

REACTIONS (1)
  - Cardiac arrest [Fatal]

NARRATIVE: CASE EVENT DATE: 20180128
